FAERS Safety Report 25018126 (Version 3)
Quarter: 2025Q3

REPORT INFORMATION
  Report Type: Report from Study
  Country: CA (occurrence: CA)
  Receive Date: 20250227
  Receipt Date: 20250803
  Transmission Date: 20251021
  Serious: Yes (Hospitalization, Other)
  Sender: ALEXION PHARMACEUTICALS
  Company Number: CA-AstraZeneca-CH-00814914A

PATIENT
  Age: 72 Year
  Sex: Female

DRUGS (5)
  1. BENRALIZUMAB [Suspect]
     Active Substance: BENRALIZUMAB
     Indication: Asthma
  2. SINGULAIR [Concomitant]
     Active Substance: MONTELUKAST SODIUM
     Dosage: 10 MILLIGRAM, QD
     Route: 065
  3. SPIRIVA RESPIMAT [Concomitant]
     Active Substance: TIOTROPIUM BROMIDE
     Route: 065
  4. VENTOLIN [Concomitant]
     Active Substance: ALBUTEROL SULFATE
     Route: 065
  5. SYMBICORT [Concomitant]
     Active Substance: BUDESONIDE\FORMOTEROL FUMARATE DIHYDRATE
     Route: 065

REACTIONS (8)
  - Fall [Unknown]
  - Rib fracture [Unknown]
  - Lung perforation [Unknown]
  - Abdominal pain upper [Unknown]
  - Aneurysm [Unknown]
  - Hypersensitivity [Unknown]
  - Rehabilitation therapy [Unknown]
  - Surgery [Unknown]

NARRATIVE: CASE EVENT DATE: 20250201
